FAERS Safety Report 8194350-3 (Version None)
Quarter: 2012Q1

REPORT INFORMATION
  Report Type: 
  Country: None (occurrence: None)
  Receive Date: 20120308
  Receipt Date: 20120305
  Transmission Date: 20120608
  Serious: No
  Sender: FDA-Public Use
  Company Number: US-PFIZER INC-2012032038

PATIENT
  Sex: Female

DRUGS (1)
  1. PREMARIN [Suspect]
     Dosage: UNK

REACTIONS (5)
  - CRYING [None]
  - DEPRESSION [None]
  - CHEST DISCOMFORT [None]
  - DRUG INEFFECTIVE [None]
  - LIVER DISORDER [None]
